FAERS Safety Report 8423653-X (Version None)
Quarter: 2012Q2

REPORT INFORMATION
  Report Type: 
  Country: None (occurrence: None)
  Receive Date: 20120608
  Receipt Date: 20120531
  Transmission Date: 20120825
  Serious: Yes (Other)
  Sender: FDA-Public Use
  Company Number: PHHY2012IR046766

PATIENT
  Age: 17 Year
  Sex: Female

DRUGS (1)
  1. HALOPERIDOL [Suspect]
     Dosage: 10 DF, UNK
     Route: 048

REACTIONS (9)
  - TENDERNESS [None]
  - PAIN [None]
  - DYSTONIA [None]
  - SUICIDE ATTEMPT [None]
  - JOINT DISLOCATION [None]
  - BLOOD PRESSURE DECREASED [None]
  - HEART RATE INCREASED [None]
  - AGITATION [None]
  - ANXIETY [None]
